FAERS Safety Report 23986663 (Version 1)
Quarter: 2024Q2

REPORT INFORMATION
  Report Type: Spontaneous
  Country: US (occurrence: None)
  Receive Date: 20240617
  Receipt Date: 20240617
  Transmission Date: 20240716
  Serious: Yes (Other)
  Sender: FDA-Public Use
  Company Number: None

PATIENT
  Age: 63 Year
  Sex: Male
  Weight: 70.3 kg

DRUGS (11)
  1. PALIPERIDONE [Suspect]
     Active Substance: PALIPERIDONE
     Indication: Schizoaffective disorder
     Dosage: FREQUENCY : DAILY;?
     Route: 048
     Dates: start: 20240508
  2. ACETAMINOPHEN [Concomitant]
     Active Substance: ACETAMINOPHEN
  3. ATORVASTATIN [Concomitant]
     Active Substance: ATORVASTATIN
  4. LISINOPRIL [Concomitant]
     Active Substance: LISINOPRIL
  5. LISINOPRIL [Concomitant]
     Active Substance: LISINOPRIL
  6. LISINOPRIL [Concomitant]
     Active Substance: LISINOPRIL
  7. Lithium 300 mg CR [Concomitant]
  8. NAPROXEN [Concomitant]
     Active Substance: NAPROXEN
  9. Pantoprazole 40 DR [Concomitant]
  10. TAMSULOSIN [Concomitant]
     Active Substance: TAMSULOSIN
  11. TRAZODONE [Concomitant]
     Active Substance: TRAZODONE HYDROCHLORIDE

REACTIONS (1)
  - Amylase increased [None]

NARRATIVE: CASE EVENT DATE: 20240508
